FAERS Safety Report 15474991 (Version 1)
Quarter: 2018Q4

REPORT INFORMATION
  Report Type: Spontaneous
  Country: US (occurrence: US)
  Receive Date: 20181008
  Receipt Date: 20181008
  Transmission Date: 20190205
  Serious: Yes (Other)
  Sender: FDA-Public Use
  Company Number: US-SA-2018SA272335

PATIENT
  Age: 82 Year
  Sex: Male

DRUGS (1)
  1. LANTUS [Suspect]
     Active Substance: INSULIN GLARGINE
     Indication: TYPE 2 DIABETES MELLITUS
     Dosage: 58 U, QD
     Route: 065

REACTIONS (5)
  - Walking aid user [Unknown]
  - Gallbladder disorder [Unknown]
  - Bone pain [Unknown]
  - Device breakage [Unknown]
  - Device operational issue [Unknown]
